FAERS Safety Report 7110695-X (Version None)
Quarter: 2010Q4

REPORT INFORMATION
  Report Type: 
  Country: None (occurrence: None)
  Receive Date: 20101118
  Receipt Date: 20101116
  Transmission Date: 20110411
  Serious: Yes (Hospitalization, Other)
  Sender: FDA-Public Use
  Company Number: A0881693A

PATIENT
  Age: 81 Year
  Sex: Male
  Weight: 53.5 kg

DRUGS (6)
  1. PROMACTA [Suspect]
     Indication: THROMBOCYTOPENIA
     Dosage: 50MG PER DAY
     Route: 048
     Dates: end: 20100917
  2. COLCHICINE [Concomitant]
  3. BLOOD PRESSURE MEDICATION [Concomitant]
  4. ZOSYN [Concomitant]
     Route: 042
     Dates: start: 20100910, end: 20100920
  5. FLUCONAZOLE [Concomitant]
     Route: 042
     Dates: start: 20100910
  6. PREDNISONE [Concomitant]
     Route: 048

REACTIONS (2)
  - COLONOSCOPY [None]
  - WHITE BLOOD CELL COUNT INCREASED [None]
